FAERS Safety Report 11809849 (Version 1)
Quarter: 2015Q4

REPORT INFORMATION
  Report Type: Spontaneous
  Country: US (occurrence: None)
  Receive Date: 20151207
  Receipt Date: 20151207
  Transmission Date: 20160305
  Serious: Yes (Death)
  Sender: FDA-Public Use
  Company Number: None

PATIENT
  Age: 6 Year
  Sex: Male
  Weight: 20.7 kg

DRUGS (4)
  1. VINCRISTINE SULFATE. [Suspect]
     Active Substance: VINCRISTINE SULFATE
     Dates: end: 20151117
  2. MERCAPTOPURINE. [Suspect]
     Active Substance: MERCAPTOPURINE
     Dates: end: 20151120
  3. METHOTREXATE [Suspect]
     Active Substance: METHOTREXATE
     Dates: end: 20151117
  4. PREDNISONE. [Suspect]
     Active Substance: PREDNISONE
     Dates: end: 20151120

REACTIONS (6)
  - Sepsis [None]
  - Hypotension [None]
  - Vomiting [None]
  - Feeling cold [None]
  - Heart rate decreased [None]
  - Asthenia [None]

NARRATIVE: CASE EVENT DATE: 20151201
